FAERS Safety Report 17011891 (Version 1)
Quarter: 2019Q4

REPORT INFORMATION
  Report Type: Spontaneous
  Country: AU (occurrence: AU)
  Receive Date: 20191108
  Receipt Date: 20191108
  Transmission Date: 20200122
  Serious: Yes (Hospitalization)
  Sender: FDA-Public Use
  Company Number: AU-TRIS PHARMA, INC.-19AU008592

PATIENT

DRUGS (1)
  1. LEVETIRACETAM. [Suspect]
     Active Substance: LEVETIRACETAM
     Indication: SEIZURE
     Route: 065

REACTIONS (3)
  - Agitation [Recovering/Resolving]
  - Abnormal behaviour [Recovering/Resolving]
  - Aggression [Recovering/Resolving]
